FAERS Safety Report 6579332-7 (Version None)
Quarter: 2010Q1

REPORT INFORMATION
  Report Type: 
  Country: None (occurrence: None)
  Receive Date: 20100212
  Receipt Date: 20100202
  Transmission Date: 20100710
  Serious: Yes (Hospitalization)
  Sender: FDA-Public Use
  Company Number: PL-JNJFOC-20091100390

PATIENT
  Age: 49 Year
  Sex: Female
  Weight: 60 kg

DRUGS (8)
  1. BLINDED; INFLIXIMAB, RECOMBINANT [Suspect]
     Indication: COLITIS ULCERATIVE
     Route: 042
     Dates: start: 20091006, end: 20091030
  2. PLACEBO [Suspect]
     Indication: COLITIS ULCERATIVE
     Route: 042
     Dates: start: 20091006, end: 20091030
  3. AZATHIOPRINE [Suspect]
     Indication: COLITIS ULCERATIVE
     Route: 048
     Dates: start: 20091007, end: 20091021
  4. PLACEBO [Suspect]
     Route: 048
     Dates: start: 20091007, end: 20091026
  5. METYPRED [Suspect]
     Indication: COLITIS ULCERATIVE
     Route: 048
  6. SALOFALK [Concomitant]
     Indication: COLITIS ULCERATIVE
     Dosage: 3X2
     Route: 048
  7. BISOCARD [Concomitant]
     Indication: HYPERTENSION
     Dosage: 1X1/2
     Route: 048
  8. FOLIC ACID [Concomitant]
     Indication: ANAEMIA PROPHYLAXIS
     Route: 048

REACTIONS (3)
  - ASPERGILLOSIS [None]
  - PNEUMONIA [None]
  - PULMONARY EMBOLISM [None]
